FAERS Safety Report 11363870 (Version 2)
Quarter: 2015Q3

REPORT INFORMATION
  Report Type: Spontaneous
  Country: CN (occurrence: CN)
  Receive Date: 20150811
  Receipt Date: 20150820
  Transmission Date: 20151125
  Serious: Yes (Death, Hospitalization)
  Sender: FDA-Public Use
  Company Number: CN-ROCHE-1619165

PATIENT
  Age: 53 Year
  Sex: Male
  Weight: 115 kg

DRUGS (3)
  1. ACTILYSE [Suspect]
     Active Substance: ALTEPLASE
     Indication: ISCHAEMIC STROKE
     Dosage: DAILY DOSE: 0.6MG/KG (70MG)
     Route: 042
  2. URAPIDIL [Concomitant]
     Active Substance: URAPIDIL
     Indication: HYPERTENSION
     Route: 042
  3. LEVOTHYROXINE SODIUM. [Concomitant]
     Active Substance: LEVOTHYROXINE SODIUM
     Indication: HYPOTHYROIDISM
     Route: 048

REACTIONS (6)
  - Brain oedema [Unknown]
  - Lung infection [Unknown]
  - Cerebral haemorrhage [Fatal]
  - Electrolyte imbalance [Unknown]
  - Hepatic function abnormal [Unknown]
  - Renal impairment [Unknown]
